FAERS Safety Report 10260102 (Version 1)
Quarter: 2014Q2

REPORT INFORMATION
  Report Type: Spontaneous
  Country: NZ (occurrence: NZ)
  Receive Date: 20140625
  Receipt Date: 20140625
  Transmission Date: 20141212
  Serious: Yes (Other)
  Sender: FDA-Public Use
  Company Number: NZ-WATSON-2014-14115

PATIENT
  Age: 33 Year
  Sex: Female

DRUGS (10)
  1. METHYLPREDNISOLONE (UNKNOWN) [Suspect]
     Indication: GRANULOMATOSIS WITH POLYANGIITIS
     Dosage: 1 G, UNK, 3 PULSES
     Route: 065
  2. PREDNISONE (UNKNOWN) [Suspect]
     Indication: GRANULOMATOSIS WITH POLYANGIITIS
     Dosage: 80 MG, UNK
     Route: 048
  3. LITHIUM CARBONATE (UNKNOWN) [Suspect]
     Indication: PSYCHOTIC DISORDER
     Dosage: 400 MG, BID
     Route: 065
  4. LITHIUM CARBONATE (UNKNOWN) [Suspect]
     Indication: PROPHYLAXIS
  5. RITUXIMAB [Concomitant]
     Indication: GRANULOMATOSIS WITH POLYANGIITIS
     Dosage: WEEKLY
     Route: 065
  6. CYCLOPHOSPHAMIDE [Concomitant]
     Indication: GRANULOMATOSIS WITH POLYANGIITIS
     Dosage: EVERY 3 WEEKS
     Route: 065
  7. OLANZAPINE [Concomitant]
     Indication: GRANULOMATOSIS WITH POLYANGIITIS
     Dosage: 15 MG, TID
     Route: 065
  8. LORAZEPAM [Concomitant]
     Indication: AGITATION
     Dosage: 1 MG AS REQUIRED EVERY 2 H
     Route: 065
  9. GABAPENTIN [Concomitant]
     Indication: ARTHRALGIA
     Dosage: 600 MG, TID
     Route: 065
  10. FENTANYL [Concomitant]
     Indication: ARTHRALGIA
     Dosage: PATIENT CONTROLLED PAIN PUMP
     Route: 065

REACTIONS (2)
  - Hypomania [Recovered/Resolved]
  - Nephropathy toxic [Unknown]
